FAERS Safety Report 15981248 (Version 2)
Quarter: 2019Q1

REPORT INFORMATION
  Report Type: Spontaneous
  Country: MX (occurrence: MX)
  Receive Date: 20190219
  Receipt Date: 20190228
  Transmission Date: 20190418
  Serious: Yes (Other)
  Sender: FDA-Public Use
  Company Number: MX-BEH-2019099392

PATIENT
  Age: 15 Year
  Sex: Male
  Weight: 51 kg

DRUGS (8)
  1. FLUCONAZOLE. [Concomitant]
     Active Substance: FLUCONAZOLE
     Indication: PRODUCT USED FOR UNKNOWN INDICATION
     Route: 065
  2. IMIPENEM [Concomitant]
     Active Substance: IMIPENEM
     Indication: PRODUCT USED FOR UNKNOWN INDICATION
  3. OSELTAMIVIR [Concomitant]
     Active Substance: OSELTAMIVIR
     Indication: PRODUCT USED FOR UNKNOWN INDICATION
     Route: 065
  4. HIGLOBIN [Suspect]
     Active Substance: HUMAN IMMUNOGLOBULIN G
     Indication: PRODUCT USED FOR UNKNOWN INDICATION
     Dosage: 25 G, UNK, PLANNED 1G/KG
     Route: 042
     Dates: start: 201901
  5. DEXAMETHASONE. [Concomitant]
     Active Substance: DEXAMETHASONE
     Indication: PRODUCT USED FOR UNKNOWN INDICATION
  6. HIGLOBIN [Suspect]
     Active Substance: HUMAN IMMUNOGLOBULIN G
     Dosage: 22 G, UNK
     Route: 042
     Dates: start: 201901
  7. ACYCLOVIR                          /00587301/ [Concomitant]
     Active Substance: ACYCLOVIR
     Indication: PRODUCT USED FOR UNKNOWN INDICATION
     Route: 065
  8. ISOPROTERENOL                      /00006301/ [Concomitant]
     Active Substance: ISOPROTERENOL
     Indication: PRODUCT USED FOR UNKNOWN INDICATION
     Dosage: 10 MG, TID
     Route: 048

REACTIONS (10)
  - Anaphylactic reaction [Recovered/Resolved]
  - Septic shock [Unknown]
  - Hypersensitivity [Recovered/Resolved]
  - Dysuria [Unknown]
  - Nosocomial infection [Unknown]
  - Rash [Recovered/Resolved]
  - Bacterial infection [Unknown]
  - Hypotension [Recovered/Resolved]
  - Dysphagia [Recovered/Resolved]
  - Renal injury [Unknown]

NARRATIVE: CASE EVENT DATE: 201901
